FAERS Safety Report 14701563 (Version 1)
Quarter: 2018Q1

REPORT INFORMATION
  Report Type: Spontaneous
  Country: US (occurrence: US)
  Receive Date: 20180330
  Receipt Date: 20180330
  Transmission Date: 20180509
  Serious: Yes (Other)
  Sender: FDA-Public Use
  Company Number: US-DRREDDYS-USA/USA/17/0087664

PATIENT
  Age: 19 Year
  Sex: Female

DRUGS (4)
  1. PANTOPRAZOLE SODIUM DR TABLETS 20MG AND  40MG [Suspect]
     Active Substance: PANTOPRAZOLE SODIUM
     Indication: PRODUCT USED FOR UNKNOWN INDICATION
     Dosage: APPROXIMATELY 6 WEEKS AFTER PANTOPRAZOLE INITIATION
     Route: 048
  2. RITUXIMAB. [Concomitant]
     Active Substance: RITUXIMAB
     Indication: PULMONARY ALVEOLAR HAEMORRHAGE
     Route: 065
  3. METHYLPREDNISOLONE. [Concomitant]
     Active Substance: METHYLPREDNISOLONE
     Indication: PULMONARY ALVEOLAR HAEMORRHAGE
     Dosage: PULSED METHYLPREDNISOLONE
     Route: 065
  4. SULFAMETHOXAZOLE/TRIMETHOPRIM [Concomitant]
     Active Substance: SULFAMETHOXAZOLE\TRIMETHOPRIM
     Indication: PRODUCT USED FOR UNKNOWN INDICATION
     Route: 065

REACTIONS (1)
  - Subacute cutaneous lupus erythematosus [Recovered/Resolved]

NARRATIVE: CASE EVENT DATE: 201410
